FAERS Safety Report 12126613 (Version 1)
Quarter: 2016Q1

REPORT INFORMATION
  Report Type: Spontaneous
  Country: GB (occurrence: GB)
  Receive Date: 20160229
  Receipt Date: 20160229
  Transmission Date: 20160526
  Serious: Yes (Other)
  Sender: FDA-Public Use
  Company Number: GB-CIPLA LTD.-2016GB01466

PATIENT

DRUGS (3)
  1. LOPINAVIR/RITONAVIR [Suspect]
     Active Substance: LOPINAVIR\RITONAVIR
     Route: 065
  2. RIFAMYCIN [Suspect]
     Active Substance: RIFAMYCIN
     Route: 065
  3. RIFABUTIN. [Suspect]
     Active Substance: RIFABUTIN
     Route: 065

REACTIONS (1)
  - Tuberculosis [Unknown]
